FAERS Safety Report 21618406 (Version 1)
Quarter: 2022Q4

REPORT INFORMATION
  Report Type: Spontaneous
  Country: CN (occurrence: CN)
  Receive Date: 20221119
  Receipt Date: 20221119
  Transmission Date: 20230113
  Serious: Yes (Hospitalization)
  Sender: FDA-Public Use
  Company Number: None

PATIENT
  Age: 29 Year
  Sex: Male
  Weight: 74 kg

DRUGS (6)
  1. CYCLOPHOSPHAMIDE [Suspect]
     Active Substance: CYCLOPHOSPHAMIDE
     Indication: Acute lymphocytic leukaemia
     Dosage: 0.38 G, BID, POWDER INJECTION, DILUTED WITH 0.9% NS (250 ML)
     Route: 041
     Dates: start: 20221031, end: 20221102
  2. METHOTREXATE [Suspect]
     Active Substance: METHOTREXATE
     Indication: Acute lymphocytic leukaemia
     Dosage: 9.5 G, QD, DILUTED WITH 0.9% NS (500 ML)
     Route: 041
     Dates: start: 20221031, end: 20221031
  3. VINORELBINE TARTRATE [Suspect]
     Active Substance: VINORELBINE TARTRATE
     Indication: Acute lymphocytic leukaemia
     Dosage: 40 MG, QD, DILUTED WITH 0.9% NS (100 ML)
     Route: 041
     Dates: start: 20221031, end: 20221031
  4. SODIUM CHLORIDE [Concomitant]
     Active Substance: SODIUM CHLORIDE
     Indication: Vehicle solution use
     Dosage: 250 ML, BID, USED TO DILUTE CYCLOPHOSPHAMIDE (0.38 G)
     Route: 041
     Dates: start: 20221031, end: 20221102
  5. SODIUM CHLORIDE [Concomitant]
     Active Substance: SODIUM CHLORIDE
     Dosage: 500 ML, QD, USED TO DILUTE METHOTREXATE (9.5 G)
     Route: 041
     Dates: start: 20221031, end: 20221031
  6. SODIUM CHLORIDE [Concomitant]
     Active Substance: SODIUM CHLORIDE
     Dosage: 100 ML, QD, USED TO DILUTE VINORELBINE TARTRATE (40 MG)
     Route: 041
     Dates: start: 20221031, end: 20221031

REACTIONS (1)
  - Mouth ulceration [Recovering/Resolving]

NARRATIVE: CASE EVENT DATE: 20221104
